FAERS Safety Report 25362778 (Version 1)
Quarter: 2025Q2

REPORT INFORMATION
  Report Type: Spontaneous
  Country: GB (occurrence: GB)
  Receive Date: 20250527
  Receipt Date: 20250527
  Transmission Date: 20250716
  Serious: Yes (Hospitalization)
  Sender: MYLAN
  Company Number: GB-MYLANLABS-2025M1044388

PATIENT

DRUGS (8)
  1. AMBRISENTAN [Suspect]
     Active Substance: AMBRISENTAN
     Indication: Product used for unknown indication
  2. AMBRISENTAN [Suspect]
     Active Substance: AMBRISENTAN
  3. AMBRISENTAN [Suspect]
     Active Substance: AMBRISENTAN
     Route: 065
  4. AMBRISENTAN [Suspect]
     Active Substance: AMBRISENTAN
     Route: 065
  5. AMBRISENTAN [Suspect]
     Active Substance: AMBRISENTAN
  6. AMBRISENTAN [Suspect]
     Active Substance: AMBRISENTAN
  7. AMBRISENTAN [Suspect]
     Active Substance: AMBRISENTAN
     Route: 065
  8. AMBRISENTAN [Suspect]
     Active Substance: AMBRISENTAN
     Route: 065

REACTIONS (1)
  - Pulmonary hypertension [Unknown]

NARRATIVE: CASE EVENT DATE: 20250519
